FAERS Safety Report 4283970-4 (Version None)
Quarter: 2004Q1

REPORT INFORMATION
  Report Type: 
  Country: None (occurrence: None)
  Receive Date: 20040121
  Receipt Date: 20021213
  Transmission Date: 20041129
  Serious: Yes (Other)
  Sender: FDA-Public Use
  Company Number: A03200201556

PATIENT
  Age: 67 Year
  Sex: Male
  Weight: 90.7194 kg

DRUGS (3)
  1. PLAVIX [Suspect]
     Indication: SURGERY
     Dosage: 75 MG QD - ORAL
     Route: 048
     Dates: start: 20021211, end: 20021213
  2. VITAMINS NOS [Concomitant]
  3. ATORVASTATN [Concomitant]

REACTIONS (2)
  - RASH PRURITIC [None]
  - THROAT TIGHTNESS [None]
